FAERS Safety Report 22639457 (Version 1)
Quarter: 2023Q2

REPORT INFORMATION
  Report Type: Spontaneous
  Country: AU (occurrence: AU)
  Receive Date: 20230626
  Receipt Date: 20230626
  Transmission Date: 20230722
  Serious: Yes (Other)
  Sender: FDA-Public Use
  Company Number: AU-BAXTER-2023BAX024581

PATIENT
  Sex: Male

DRUGS (7)
  1. DOXORUBICIN [Suspect]
     Active Substance: DOXORUBICIN
     Indication: Diffuse large B-cell lymphoma
     Dosage: UNK, START DATE: APR2023, 6 CYCLES, AS PART OF DA-EPOCH-R REGIMEN CHEMOTHERAPY
     Route: 065
  2. CYCLOPHOSPHAMIDE [Suspect]
     Active Substance: CYCLOPHOSPHAMIDE
     Indication: Diffuse large B-cell lymphoma
     Dosage: UNK, START DATE: APR2023, 6 CYCLES, AS PART OF DA-EPOCH-R REGIMEN CHEMOTHERAPY
     Route: 065
  3. IFOSFAMIDE [Suspect]
     Active Substance: IFOSFAMIDE
     Indication: Diffuse large B-cell lymphoma
     Dosage: UNK,START DATE: JAN2023
     Route: 065
  4. ETOPOSIDE [Suspect]
     Active Substance: ETOPOSIDE
     Indication: Diffuse large B-cell lymphoma
     Dosage: UNK, START DATE: APR2023, 6 CYCLES, AS PART OF DA-EPOCH-R REGIMEN CHEMOTHERAPY
     Route: 065
  5. PREDNISONE [Suspect]
     Active Substance: PREDNISONE
     Indication: Diffuse large B-cell lymphoma
     Dosage: UNK, START DATE: APR2023, 6 CYCLES, AS PART OF DA-EPOCH-R REGIMEN CHEMOTHERAPY
     Route: 065
  6. VINCRISTINE SULFATE [Suspect]
     Active Substance: VINCRISTINE SULFATE
     Indication: Diffuse large B-cell lymphoma
     Dosage: UNK,START DATE: APR2023, 6 CYCLES, AS PART OF DA-EPOCH-R REGIMEN CHEMOTHERAPY
     Route: 065
  7. RITUXIMAB [Suspect]
     Active Substance: RITUXIMAB
     Indication: Diffuse large B-cell lymphoma
     Dosage: UNK, START DATE: APR2023, 6 CYCLES, AS PART OF DA-EPOCH-R REGIMEN CHEMOTHERAPY
     Route: 065

REACTIONS (2)
  - Intracranial pressure increased [Unknown]
  - Paraesthesia [Unknown]
